FAERS Safety Report 13925619 (Version 2)
Quarter: 2017Q3

REPORT INFORMATION
  Report Type: Spontaneous
  Country: UG (occurrence: UG)
  Receive Date: 20170831
  Receipt Date: 20170913
  Transmission Date: 20171127
  Serious: Yes (Other)
  Sender: FDA-Public Use
  Company Number: UG-SA-2017SA157037

PATIENT
  Age: 40 Year
  Sex: Female

DRUGS (17)
  1. TENOFOVIR [Interacting]
     Active Substance: TENOFOVIR
     Indication: HIV INFECTION
     Route: 065
  2. HEPARIN [Concomitant]
     Active Substance: HEPARIN SODIUM
     Indication: DEEP VEIN THROMBOSIS
  3. TRIMETHOPRIM/SULFAMETHOXAZOLE [Interacting]
     Active Substance: SULFAMETHOXAZOLE\TRIMETHOPRIM
     Route: 065
  4. WARFARIN [Interacting]
     Active Substance: WARFARIN
     Indication: DEEP VEIN THROMBOSIS
     Dosage: WEEK 2-3
     Route: 065
  5. WARFARIN [Interacting]
     Active Substance: WARFARIN
     Indication: DEEP VEIN THROMBOSIS
     Dosage: WEEK 6-8
     Route: 065
  6. EFAVIRENZ [Interacting]
     Active Substance: EFAVIRENZ
     Indication: ANTIRETROVIRAL THERAPY
     Route: 065
  7. RIFAMPICIN [Suspect]
     Active Substance: RIFAMPIN
     Indication: TUBERCULOSIS
     Route: 065
  8. CLEXANE [Concomitant]
     Active Substance: ENOXAPARIN SODIUM
     Indication: DEEP VEIN THROMBOSIS
  9. ETHAMBUTOL [Concomitant]
     Active Substance: ETHAMBUTOL HYDROCHLORIDE
     Indication: TUBERCULOSIS
  10. TENOFOVIR [Interacting]
     Active Substance: TENOFOVIR
     Indication: ANTIRETROVIRAL THERAPY
     Route: 065
  11. LAMIVUDINE. [Interacting]
     Active Substance: LAMIVUDINE
     Indication: HIV INFECTION
     Route: 065
  12. LAMIVUDINE. [Interacting]
     Active Substance: LAMIVUDINE
     Indication: ANTIRETROVIRAL THERAPY
     Route: 065
  13. ISONIAZID. [Interacting]
     Active Substance: ISONIAZID
     Indication: TUBERCULOSIS
     Route: 065
  14. WARFARIN [Interacting]
     Active Substance: WARFARIN
     Indication: DEEP VEIN THROMBOSIS
     Dosage: WEEK 5
     Route: 065
  15. EFAVIRENZ [Interacting]
     Active Substance: EFAVIRENZ
     Indication: HIV INFECTION
     Route: 065
  16. WARFARIN [Interacting]
     Active Substance: WARFARIN
     Indication: DEEP VEIN THROMBOSIS
     Dosage: WEEK 1
     Route: 065
  17. PYRAZINAMIDE. [Concomitant]
     Active Substance: PYRAZINAMIDE
     Indication: TUBERCULOSIS

REACTIONS (3)
  - Drug interaction [Unknown]
  - Epistaxis [Recovering/Resolving]
  - Anticoagulation drug level above therapeutic [Recovered/Resolved]
